FAERS Safety Report 10802024 (Version 2)
Quarter: 2015Q2

REPORT INFORMATION
  Report Type: Spontaneous
  Country: US (occurrence: US)
  Receive Date: 20150217
  Receipt Date: 20150526
  Transmission Date: 20150821
  Serious: No
  Sender: FDA-Public Use
  Company Number: US-MALLINCKRODT-T201500264

PATIENT
  Sex: Female

DRUGS (1)
  1. H.P. ACTHAR [Suspect]
     Active Substance: CORTICOTROPIN
     Indication: GLOMERULONEPHRITIS MEMBRANOPROLIFERATIVE
     Dosage: 40 U, BIWEEKLY
     Route: 065
     Dates: start: 20141028

REACTIONS (6)
  - Gastrooesophageal reflux disease [Unknown]
  - Joint swelling [Recovering/Resolving]
  - Eye swelling [Unknown]
  - Drug ineffective [Recovering/Resolving]
  - Spinal compression fracture [Unknown]
  - Bronchitis [Unknown]

NARRATIVE: CASE EVENT DATE: 2014
